FAERS Safety Report 13065245 (Version 4)
Quarter: 2017Q1

REPORT INFORMATION
  Report Type: Spontaneous
  Country: HU (occurrence: HU)
  Receive Date: 20161227
  Receipt Date: 20170120
  Transmission Date: 20170428
  Serious: Yes (Death, Hospitalization)
  Sender: FDA-Public Use
  Company Number: HU-PFIZER INC-2016593809

PATIENT
  Age: 75 Year
  Sex: Female

DRUGS (1)
  1. XALKORI [Suspect]
     Active Substance: CRIZOTINIB
     Indication: ADENOCARCINOMA
     Dosage: 250 MG, 2X/DAY
     Route: 048
     Dates: start: 20161110

REACTIONS (9)
  - Respiratory failure [Fatal]
  - Cardiac failure congestive [Unknown]
  - Nausea [Recovered/Resolved]
  - Vomiting [Recovered/Resolved]
  - Pneumonitis [Fatal]
  - Neoplasm progression [Fatal]
  - Hyponatraemia [Recovering/Resolving]
  - Pericardial effusion [Recovered/Resolved]
  - Upper respiratory tract infection [Unknown]
